FAERS Safety Report 8250184-2 (Version None)
Quarter: 2012Q2

REPORT INFORMATION
  Report Type: 
  Country: None (occurrence: None)
  Receive Date: 20120402
  Receipt Date: 20120323
  Transmission Date: 20120825
  Serious: Yes (Other)
  Sender: FDA-Public Use
  Company Number: NO-PFIZER INC-2012080534

PATIENT
  Age: 77 Year
  Sex: Male

DRUGS (6)
  1. VENTOLIN [Concomitant]
  2. METOPROLOL SUCCINATE [Concomitant]
  3. PROSCAR [Concomitant]
  4. CORDARONE [Suspect]
     Indication: ATRIAL FLUTTER
     Dosage: 200 MG, 3X/DAY
     Route: 048
     Dates: start: 20110925, end: 20111209
  5. DIOVAN [Concomitant]
  6. WARFARIN [Concomitant]

REACTIONS (4)
  - PHOTOSENSITIVITY REACTION [None]
  - THYROXINE FREE INCREASED [None]
  - PAIN [None]
  - LISTLESS [None]
